FAERS Safety Report 18424073 (Version 7)
Quarter: 2020Q4

REPORT INFORMATION
  Report Type: Report from Study
  Country: CA (occurrence: CA)
  Receive Date: 20201025
  Receipt Date: 20201204
  Transmission Date: 20210114
  Serious: Yes (Hospitalization, Other)
  Sender: FDA-Public Use
  Company Number: CA-BEH-2020121851

PATIENT
  Age: 81 Year
  Sex: Male

DRUGS (12)
  1. CAPRON DM [Concomitant]
     Active Substance: DEXTROMETHORPHAN HYDROBROMIDE\PYRILAMINE MALEATE
  2. HAEMATE P [Suspect]
     Active Substance: ANTIHEMOPHILIC FACTOR HUMAN
     Indication: VON WILLEBRAND^S DISEASE
     Dosage: 1000 RC OF DAILY
     Route: 042
     Dates: start: 2017
  3. HAEMATE P [Suspect]
     Active Substance: ANTIHEMOPHILIC FACTOR HUMAN
     Dosage: 1000 RC OF DAILY
     Route: 042
     Dates: start: 2017
  4. CRESTOR [Concomitant]
     Active Substance: ROSUVASTATIN CALCIUM
  5. HAEMATE P [Suspect]
     Active Substance: ANTIHEMOPHILIC FACTOR HUMAN
     Indication: VON WILLEBRAND^S DISEASE
     Dosage: 1000 RC OF DAILY
     Route: 042
     Dates: start: 2017
  6. HAEMATE P [Suspect]
     Active Substance: ANTIHEMOPHILIC FACTOR HUMAN
     Dosage: 1000 INTERNATIONAL UNIT RCOF, QD
     Route: 042
     Dates: start: 20200824
  7. HAEMATE P [Suspect]
     Active Substance: ANTIHEMOPHILIC FACTOR HUMAN
     Dosage: 1000 INTERNATIONAL UNIT RCOF, QD
     Route: 042
     Dates: start: 20200824
  8. HAEMATE P [Suspect]
     Active Substance: ANTIHEMOPHILIC FACTOR HUMAN
     Dosage: 1000 RC OF DAILY
     Route: 042
     Dates: start: 2017
  9. METFORMIN [Concomitant]
     Active Substance: METFORMIN HYDROCHLORIDE
  10. HAEMATE P [Suspect]
     Active Substance: ANTIHEMOPHILIC FACTOR HUMAN
     Dosage: 1000 RC OF DAILY
     Route: 042
     Dates: start: 2017
  11. HAEMATE P [Suspect]
     Active Substance: ANTIHEMOPHILIC FACTOR HUMAN
     Dosage: 1000 RC OF DAILY
     Route: 042
     Dates: start: 2017
  12. AVANTAR PLUS [Concomitant]

REACTIONS (15)
  - Epistaxis [Recovering/Resolving]
  - Epistaxis [Not Recovered/Not Resolved]
  - Epistaxis [Recovered/Resolved]
  - Epistaxis [Recovered/Resolved]
  - Hypertensive crisis [Unknown]
  - Fatigue [Not Recovered/Not Resolved]
  - Epistaxis [Not Recovered/Not Resolved]
  - Drug ineffective [Not Recovered/Not Resolved]
  - Fatigue [Not Recovered/Not Resolved]
  - Epistaxis [Recovered/Resolved]
  - Epistaxis [Unknown]
  - Insomnia [Not Recovered/Not Resolved]
  - Insomnia [Unknown]
  - Epistaxis [Recovered/Resolved]
  - Epistaxis [Recovered/Resolved with Sequelae]

NARRATIVE: CASE EVENT DATE: 2020
